FAERS Safety Report 20975982 (Version 3)
Quarter: 2024Q4

REPORT INFORMATION
  Report Type: Spontaneous
  Country: US (occurrence: US)
  Receive Date: 20220617
  Receipt Date: 20241203
  Transmission Date: 20250115
  Serious: Yes (Other)
  Sender: PFIZER
  Company Number: US-PFIZER INC-202200846268

PATIENT
  Age: 67 Year
  Sex: Female

DRUGS (4)
  1. IBRANCE [Suspect]
     Active Substance: PALBOCICLIB
     Dosage: 75 MG, CYCLIC (DAILY FOR 21 DAYS ON 7 DAYS OFF)
     Dates: start: 20220221
  2. IBRANCE [Suspect]
     Active Substance: PALBOCICLIB
     Dosage: NORMALLY TAKE TWO WEEKS OFF
  3. IBRANCE [Suspect]
     Active Substance: PALBOCICLIB
     Dosage: 75 MG, CYCLIC 1 CAPSULE DAILY FOR 21 DAYS ON WITH 14 DAYS OFF EVERY 35 DAYS
  4. IBRANCE [Suspect]
     Active Substance: PALBOCICLIB
     Dosage: 1 CAPSULE DAILY BY MOUTH FOR 21 DAYS ON WITH 14 DAYS OFF EVERY 35 DAYS
     Route: 048

REACTIONS (3)
  - Knee operation [Unknown]
  - White blood cell count decreased [Recovering/Resolving]
  - Off label use [Unknown]

NARRATIVE: CASE EVENT DATE: 20220101
